FAERS Safety Report 7971118-1 (Version None)
Quarter: 2011Q4

REPORT INFORMATION
  Report Type: 
  Country: None (occurrence: None)
  Receive Date: 20111212
  Receipt Date: 20111212
  Transmission Date: 20120403
  Serious: Yes (Life-Threatening, Hospitalization)
  Sender: FDA-Public Use
  Company Number: None

PATIENT
  Sex: Female
  Weight: 53.523 kg

DRUGS (2)
  1. METOPROLOL TARTRATE [Suspect]
     Indication: HYPERTENSION
     Dosage: 25 MG
     Route: 048
     Dates: start: 20111116, end: 20111203
  2. METOPROLOL TARTRATE [Suspect]
     Indication: HEART RATE INCREASED
     Dosage: 25 MG
     Route: 048
     Dates: start: 20111116, end: 20111203

REACTIONS (4)
  - ABDOMINAL PAIN UPPER [None]
  - FREQUENT BOWEL MOVEMENTS [None]
  - HAEMORRHOIDS [None]
  - FAECES DISCOLOURED [None]
